FAERS Safety Report 8367650-1 (Version None)
Quarter: 2012Q2

REPORT INFORMATION
  Report Type: 
  Country: None (occurrence: None)
  Receive Date: 20120517
  Receipt Date: 20120502
  Transmission Date: 20120825
  Serious: Yes (Hospitalization)
  Sender: FDA-Public Use
  Company Number: 2012SP001367

PATIENT
  Age: 52 Year
  Sex: Male
  Weight: 188 kg

DRUGS (11)
  1. ZILEUTON [Concomitant]
  2. LEVOTHYROXINE SODIUM [Concomitant]
  3. MONTELUKAST [Concomitant]
  4. QUETIAPINE [Concomitant]
  5. PLANTAGO OVATA SEED HUSK [Concomitant]
  6. THEOPHYLLINE [Concomitant]
  7. SM-13496 [Suspect]
     Indication: SCHIZOAFFECTIVE DISORDER
     Route: 048
     Dates: start: 20120403
  8. CLONAZEPAM [Concomitant]
  9. FLUTICASONE PROPIONATE/SALMETEROL [Concomitant]
  10. BECLOMETHASONE DIPROPIONATE [Concomitant]
  11. ALBUTEROL SULFATE [Concomitant]

REACTIONS (1)
  - HOMICIDAL IDEATION [None]
